FAERS Safety Report 26136625 (Version 1)
Quarter: 2025Q4

REPORT INFORMATION
  Report Type: Spontaneous
  Country: EU (occurrence: EU)
  Receive Date: 20251209
  Receipt Date: 20251209
  Transmission Date: 20260117
  Serious: Yes (Hospitalization)
  Sender: MYLAN
  Company Number: None

PATIENT
  Age: 23 Year
  Sex: Male
  Weight: 82.2 kg

DRUGS (4)
  1. ACETAMINOPHEN [Suspect]
     Active Substance: ACETAMINOPHEN
     Indication: Product used for unknown indication
     Dosage: 20 GRAM, TOTAL (20G SUPPOSEDLY IN ONE DOSE)
     Dates: start: 20251019, end: 20251019
  2. ACETAMINOPHEN [Suspect]
     Active Substance: ACETAMINOPHEN
     Dosage: 20 GRAM, TOTAL (20G SUPPOSEDLY IN ONE DOSE)
     Route: 048
     Dates: start: 20251019, end: 20251019
  3. ACETAMINOPHEN [Suspect]
     Active Substance: ACETAMINOPHEN
     Dosage: 20 GRAM, TOTAL (20G SUPPOSEDLY IN ONE DOSE)
     Route: 048
     Dates: start: 20251019, end: 20251019
  4. ACETAMINOPHEN [Suspect]
     Active Substance: ACETAMINOPHEN
     Dosage: 20 GRAM, TOTAL (20G SUPPOSEDLY IN ONE DOSE)
     Dates: start: 20251019, end: 20251019

REACTIONS (3)
  - Hepatic cytolysis [Recovered/Resolved]
  - Intentional overdose [Recovered/Resolved]
  - Vomiting [Recovered/Resolved]

NARRATIVE: CASE EVENT DATE: 20251019
